FAERS Safety Report 5310338-1 (Version None)
Quarter: 2007Q2

REPORT INFORMATION
  Report Type: 
  Country: None (occurrence: None)
  Receive Date: 20070427
  Receipt Date: 20070424
  Transmission Date: 20071010
  Serious: Yes (Life-Threatening, Disabling)
  Sender: FDA-Public Use
  Company Number: JP-ABBOTT-01P-087-0114485-00

PATIENT
  Sex: Male

DRUGS (21)
  1. KALETRA [Suspect]
     Indication: HIV INFECTION
     Route: 048
     Dates: start: 20001225, end: 20040424
  2. NORVIR [Suspect]
     Indication: HIV INFECTION
     Route: 048
     Dates: start: 19991101, end: 20001224
  3. NORVIR [Suspect]
     Route: 048
     Dates: start: 20040425
  4. ABACAVIR SULFATE [Suspect]
     Indication: HIV INFECTION
     Route: 048
     Dates: start: 20000724, end: 20000725
  5. ABACAVIR SULFATE [Suspect]
     Route: 048
     Dates: start: 20011020, end: 20011027
  6. INDINIVIR SULFATE [Suspect]
     Indication: HIV INFECTION
     Dates: start: 20000318, end: 20000524
  7. EFAVIRENZ [Suspect]
     Indication: HIV INFECTION
     Route: 048
     Dates: start: 20000724, end: 20000725
  8. EFAVIRENZ [Suspect]
     Route: 048
     Dates: start: 20000925, end: 20001002
  9. SANILUVUDINE [Suspect]
     Indication: HIV INFECTION
     Route: 048
     Dates: start: 20010401, end: 20011020
  10. PEGINTERFERON ALFA-2B [Suspect]
     Indication: HEPATITIS C
     Dates: start: 20020817, end: 20030712
  11. DIDANOSINE [Suspect]
     Indication: HIV INFECTION
     Route: 048
     Dates: start: 19991101, end: 20010721
  12. DIDANOSINE [Suspect]
     Route: 048
     Dates: start: 20010721, end: 20040514
  13. LAMIVUDINE [Suspect]
     Indication: HIV INFECTION
     Route: 048
     Dates: start: 20040515
  14. COAGULATION FACTOR VIII [Concomitant]
     Indication: HAEMORRHAGE
     Dosage: 9-10 KU/MONTH
     Dates: start: 19991101
  15. COAGULATION FACTOR VIII [Concomitant]
     Route: 048
     Dates: start: 20010401
  16. SAQUINAVIR [Concomitant]
     Indication: HIV INFECTION
     Route: 048
     Dates: start: 19991101, end: 20001224
  17. SAQUINAVIR [Concomitant]
     Route: 048
     Dates: start: 20000524
  18. RIBAVIRIN [Concomitant]
     Indication: HEPATITIS C
     Route: 048
     Dates: start: 20020717, end: 20030712
  19. RIBAVIRIN [Concomitant]
  20. ATAZANAVIR SULFATE [Concomitant]
     Indication: HIV INFECTION
     Route: 048
     Dates: start: 20040425
  21. TENOFOVIR [Concomitant]
     Indication: HIV INFECTION
     Route: 048
     Dates: start: 20040425

REACTIONS (10)
  - DIZZINESS [None]
  - FIBRIN DEGRADATION PRODUCTS INCREASED [None]
  - HEPATIC FUNCTION ABNORMAL [None]
  - INFLUENZA LIKE ILLNESS [None]
  - NAUSEA [None]
  - NERVOUS SYSTEM DISORDER [None]
  - PALPITATIONS [None]
  - PULMONARY HYPERTENSION [None]
  - TREMOR [None]
  - VISUAL DISTURBANCE [None]
